FAERS Safety Report 13757877 (Version 6)
Quarter: 2018Q1

REPORT INFORMATION
  Report Type: Spontaneous
  Country: FI (occurrence: FI)
  Receive Date: 20170717
  Receipt Date: 20180303
  Transmission Date: 20180508
  Serious: Yes (Other)
  Sender: FDA-Public Use
  Company Number: FI-LEO PHARMA-245703

PATIENT
  Age: 73 Year
  Sex: Female

DRUGS (13)
  1. BEPANTHEN (DEXPANTHENOL) [Concomitant]
     Active Substance: DEXPANTHENOL
     Indication: PRODUCT USED FOR UNKNOWN INDICATION
  2. FOSAMAX [Concomitant]
     Active Substance: ALENDRONATE SODIUM
     Indication: OSTEOPOROSIS
  3. OTELZA [Concomitant]
     Indication: PSORIASIS
     Dates: start: 2016, end: 20170126
  4. DAIVOBET [Suspect]
     Active Substance: BETAMETHASONE DIPROPIONATE\CALCIPOTRIENE
     Indication: PSORIASIS
     Dosage: LESS THAN 15 G PER DAY
     Route: 061
     Dates: start: 20170127, end: 20170202
  5. BASIC [Concomitant]
     Indication: PRODUCT USED FOR UNKNOWN INDICATION
  6. TAR SHAMPOO [Concomitant]
     Indication: PSORIASIS
  7. SIBICORT [Concomitant]
     Indication: ROSACEA
  8. VITAMIN D [Concomitant]
     Active Substance: CHOLECALCIFEROL
     Indication: PRODUCT USED FOR UNKNOWN INDICATION
  9. OTELZA [Concomitant]
     Dates: start: 20170203
  10. CORTISONE [Concomitant]
     Active Substance: CORTISONE\HYDROCORTISONE
     Indication: PSORIASIS
  11. KALCIPOS-D [Concomitant]
     Active Substance: CALCIUM CARBONATE\CHOLECALCIFEROL
     Indication: PRODUCT USED FOR UNKNOWN INDICATION
  12. KEFEXIN [Concomitant]
     Active Substance: CEPHALEXIN
     Indication: SINUSITIS
  13. LINOLA [Concomitant]
     Indication: PSORIASIS

REACTIONS (19)
  - Dysuria [Not Recovered/Not Resolved]
  - Skin exfoliation [Not Recovered/Not Resolved]
  - Erythema [Not Recovered/Not Resolved]
  - Cataract [Not Recovered/Not Resolved]
  - Osteoporosis [Not Recovered/Not Resolved]
  - Dysphagia [Not Recovered/Not Resolved]
  - Oral pustule [Not Recovered/Not Resolved]
  - Hip fracture [Not Recovered/Not Resolved]
  - Blindness [Not Recovered/Not Resolved]
  - Constipation [Not Recovered/Not Resolved]
  - Psoriasis [Not Recovered/Not Resolved]
  - Photophobia [Not Recovered/Not Resolved]
  - Fall [Not Recovered/Not Resolved]
  - Maculopathy [Not Recovered/Not Resolved]
  - Visual impairment [Not Recovered/Not Resolved]
  - Lymphadenopathy [Not Recovered/Not Resolved]
  - Pruritus [Not Recovered/Not Resolved]
  - Intraocular haematoma [Not Recovered/Not Resolved]
  - Blister [Not Recovered/Not Resolved]
